FAERS Safety Report 8721249 (Version 6)
Quarter: 2013Q4

REPORT INFORMATION
  Report Type: Report from Study
  Country: SI (occurrence: SI)
  Receive Date: 20120813
  Receipt Date: 20131009
  Transmission Date: 20140711
  Serious: Yes (Hospitalization, Other)
  Sender: FDA-Public Use
  Company Number: SI-ROCHE-1099321

PATIENT
  Age: 71 Year
  Sex: Female
  Weight: 67 kg

DRUGS (6)
  1. VEMURAFENIB [Suspect]
     Indication: MALIGNANT MELANOMA
     Dosage: LAST DOSE PRIOR TO SAE: 30/JUL/2012
     Route: 048
     Dates: start: 20120604, end: 20120830
  2. ENAP-H [Concomitant]
     Route: 065
     Dates: start: 2007
  3. MEDROL [Concomitant]
     Route: 065
     Dates: start: 2010
  4. CONCOR [Concomitant]
     Route: 065
     Dates: start: 2012
  5. CONCOR [Concomitant]
     Route: 065
     Dates: start: 2012
  6. ALPHA D3 [Concomitant]
     Route: 065
     Dates: start: 2010

REACTIONS (2)
  - Nephropathy [Recovered/Resolved]
  - Squamous cell carcinoma of skin [Recovered/Resolved]
